FAERS Safety Report 23465092 (Version 1)
Quarter: 2024Q1

REPORT INFORMATION
  Report Type: Spontaneous
  Country: US (occurrence: US)
  Receive Date: 20240201
  Receipt Date: 20240201
  Transmission Date: 20240409
  Serious: No
  Sender: FDA-Public Use
  Company Number: US-GSKCCFUS-Case-01914797_AE-106660

PATIENT
  Sex: Female

DRUGS (1)
  1. ARNUITY ELLIPTA [Suspect]
     Active Substance: FLUTICASONE FUROATE
     Indication: Product used for unknown indication
     Dosage: UNK
     Dates: start: 20240119

REACTIONS (5)
  - Paraesthesia [Unknown]
  - Tongue erythema [Unknown]
  - Dysphonia [Unknown]
  - Urticaria [Unknown]
  - Skin discolouration [Unknown]
